FAERS Safety Report 8896400 (Version 3)
Quarter: 2013Q1

REPORT INFORMATION
  Report Type: Spontaneous
  Country: JP (occurrence: None)
  Receive Date: 20121102
  Receipt Date: 20121231
  Transmission Date: 20140127
  Serious: Yes (Hospitalization, Other)
  Sender: FDA-Public Use
  Company Number: ADR-2012-02010

PATIENT
  Age: 37 Year
  Sex: Male

DRUGS (1)
  1. GABALON [Suspect]
     Indication: CEREBRAL PALSY
     Dosage: 160 MCG/DAY; SEE B5
     Dates: start: 20071122

REACTIONS (2)
  - Implant site erythema [None]
  - Device extrusion [None]
